FAERS Safety Report 15355675 (Version 1)
Quarter: 2018Q3

REPORT INFORMATION
  Report Type: Spontaneous
  Country: CN (occurrence: CN)
  Receive Date: 20180906
  Receipt Date: 20180906
  Transmission Date: 20181010
  Serious: Yes (Other)
  Sender: FDA-Public Use
  Company Number: CN-NAPPMUNDI-GBR-2018-0058968

PATIENT
  Age: 74 Year
  Sex: Male

DRUGS (8)
  1. DIAZEPAM. [Interacting]
     Active Substance: DIAZEPAM
     Indication: INSOMNIA
     Dosage: 3 TABLET, UNK
     Route: 065
  2. DEZOCINE [Concomitant]
     Active Substance: DEZOCINE
     Indication: ANALGESIC THERAPY
     Dosage: 5 MG
     Route: 030
     Dates: start: 20180622, end: 20180623
  3. MS CONTIN [Interacting]
     Active Substance: MORPHINE SULFATE
     Indication: ANALGESIC THERAPY
     Dosage: 10 MG, UNK
     Route: 048
     Dates: start: 20180623
  4. FUROSEMIDE. [Concomitant]
     Active Substance: FUROSEMIDE
     Indication: DIURETIC THERAPY
     Dosage: 5 ML, Q1H
  5. CEFUROXIME SODIUM. [Concomitant]
     Active Substance: CEFUROXIME SODIUM
     Indication: ANTI-INFECTIVE THERAPY
     Dosage: 1.5 G, Q12H
  6. MS CONTIN [Suspect]
     Active Substance: MORPHINE SULFATE
     Indication: CHOLANGIOCARCINOMA
     Dosage: 10 MG, Q12H
     Route: 048
     Dates: start: 20180625, end: 20180626
  7. NITROGLYCERIN. [Concomitant]
     Active Substance: NITROGLYCERIN
     Indication: CORONARY ARTERY DISEASE
     Dosage: 1.5 ML, Q1H
  8. HEPARIN SODIUM. [Concomitant]
     Active Substance: HEPARIN SODIUM
     Indication: ANTICOAGULANT THERAPY
     Dosage: 60 MG
     Route: 058

REACTIONS (6)
  - Somnolence [Recovering/Resolving]
  - Hepatic encephalopathy [Unknown]
  - Drug interaction [Unknown]
  - Abdominal pain [Unknown]
  - Delirium [Recovering/Resolving]
  - Pyrexia [Unknown]

NARRATIVE: CASE EVENT DATE: 20180624
